FAERS Safety Report 8521026-2 (Version None)
Quarter: 2012Q3

REPORT INFORMATION
  Report Type: 
  Country: None (occurrence: None)
  Receive Date: 20120719
  Receipt Date: 20120712
  Transmission Date: 20120928
  Serious: Yes (Other)
  Sender: FDA-Public Use
  Company Number: US-BAYER-2012-071022

PATIENT
  Sex: Female

DRUGS (3)
  1. ALEVE (CAPLET) [Suspect]
     Indication: OVARIAN CYST
  2. ALEVE (CAPLET) [Suspect]
     Indication: HEADACHE
  3. ALEVE (CAPLET) [Suspect]
     Indication: DYSMENORRHOEA
     Dosage: UNK UNK, BID
     Route: 048

REACTIONS (4)
  - DYSMENORRHOEA [None]
  - VAGINAL HAEMORRHAGE [None]
  - DIARRHOEA [None]
  - ABDOMINAL DISCOMFORT [None]
